FAERS Safety Report 7914810-7 (Version None)
Quarter: 2011Q4

REPORT INFORMATION
  Report Type: 
  Country: None (occurrence: None)
  Receive Date: 20111115
  Receipt Date: 20111110
  Transmission Date: 20120403
  Serious: Yes (Hospitalization, Other)
  Sender: FDA-Public Use
  Company Number: US-CELGENEUS-163-21880-11071336

PATIENT
  Sex: Male
  Weight: 52.21 kg

DRUGS (16)
  1. REVLIMID [Suspect]
     Dosage: 8.3333 MILLIGRAM
     Route: 048
  2. NEXIUM [Concomitant]
     Route: 065
  3. CYCLOPHOSPHAMIDE [Concomitant]
     Indication: MULTIPLE MYELOMA
     Dosage: 250 MILLIGRAM
     Route: 041
  4. DEXAMETHASONE [Concomitant]
     Indication: MULTIPLE MYELOMA
     Dosage: 8 MILLIGRAM
     Route: 065
  5. MIRALAX [Concomitant]
     Route: 065
  6. NORCO [Concomitant]
     Dosage: 2 TABLETS
     Route: 048
  7. METOPROLOL [Concomitant]
     Dosage: 25 MILLIGRAM
     Route: 065
  8. OMEPRAZOLE [Concomitant]
     Dosage: 40 MILLIGRAM
     Route: 065
  9. FENTANYL [Concomitant]
     Dosage: 50 MICROGRAM
     Route: 065
  10. MIRTAZAPINE [Concomitant]
     Dosage: 50 MILLIGRAM
     Route: 065
  11. LISINOPRIL [Concomitant]
     Dosage: 10 MILLIGRAM
     Route: 065
  12. REVLIMID [Suspect]
     Indication: MULTIPLE MYELOMA
     Dosage: 25 MILLIGRAM
     Route: 048
     Dates: start: 20061201
  13. REVLIMID [Suspect]
     Dosage: 12.5 MILLIGRAM
     Route: 048
  14. MORPHINE [Concomitant]
     Route: 065
  15. AMBIEN [Concomitant]
     Dosage: 10 MILLIGRAM
     Route: 065
  16. SENOKOT [Concomitant]
     Route: 065

REACTIONS (3)
  - PANCREATITIS RELAPSING [None]
  - CHOLELITHIASIS [None]
  - PARAESTHESIA [None]
